FAERS Safety Report 8352978-1 (Version None)
Quarter: 2012Q2

REPORT INFORMATION
  Report Type: 
  Country: None (occurrence: None)
  Receive Date: 20120511
  Receipt Date: 20120210
  Transmission Date: 20120825
  Serious: No
  Sender: FDA-Public Use
  Company Number: US-GLAXOSMITHKLINE-A0965539A

PATIENT
  Sex: Male

DRUGS (6)
  1. COQ10 [Concomitant]
  2. TAMSULOSIN HCL [Concomitant]
  3. CELEBREX [Concomitant]
  4. AVODART [Concomitant]
  5. DYNACIRC CR [Suspect]
     Indication: HYPERTENSION
     Dosage: 20MG PER DAY
     Route: 048
     Dates: start: 20100101
  6. LIPITOR [Concomitant]

REACTIONS (1)
  - OEDEMA PERIPHERAL [None]
